FAERS Safety Report 8561950-8 (Version None)
Quarter: 2012Q3

REPORT INFORMATION
  Report Type: 
  Country: None (occurrence: None)
  Receive Date: 20120802
  Receipt Date: 20120726
  Transmission Date: 20120928
  Serious: Yes (Other)
  Sender: FDA-Public Use
  Company Number: AU-JNJFOC-20120713787

PATIENT
  Sex: Male

DRUGS (3)
  1. STELARA [Suspect]
     Indication: PSORIASIS
     Route: 058
     Dates: start: 20120221
  2. STELARA [Suspect]
     Route: 058
     Dates: start: 20120124
  3. STELARA [Suspect]
     Route: 058
     Dates: start: 20120522

REACTIONS (1)
  - DEPRESSION [None]
